FAERS Safety Report 10163053 (Version 2)
Quarter: 2014Q2

REPORT INFORMATION
  Report Type: Spontaneous
  Country: RS (occurrence: RS)
  Receive Date: 20140509
  Receipt Date: 20140620
  Transmission Date: 20141212
  Serious: Yes (Other)
  Sender: FDA-Public Use
  Company Number: PHHY2014RS054478

PATIENT
  Age: 39 Year
  Sex: Female

DRUGS (8)
  1. PAMIDRONATE [Suspect]
     Indication: CALCINOSIS
     Dosage: 60 UNK, UNK
  2. PAMIDRONATE [Suspect]
     Dosage: 30 MG, UNK
  3. PAMIDRONATE [Suspect]
     Dosage: 15 MG, UNK
  4. COLCHICINE [Suspect]
     Indication: CALCINOSIS
  5. DILTIAZEM [Suspect]
     Dosage: 30 MG, PER DAY
  6. PREDNISOLONE [Concomitant]
     Indication: DERMATOMYOSITIS
     Dosage: 20 MG, UNK
  7. PREDNISOLONE [Concomitant]
     Dosage: 10 MG, PER DAY (5 OR 10 MG/DAY)
  8. AZATHIOPRINE [Concomitant]
     Dosage: 50 MG, UNK

REACTIONS (5)
  - Walking disability [Unknown]
  - Granulocytopenia [Unknown]
  - Muscular weakness [Unknown]
  - Drug ineffective [Unknown]
  - Hypocalcaemia [Unknown]
